FAERS Safety Report 8238118-8 (Version None)
Quarter: 2012Q1

REPORT INFORMATION
  Report Type: 
  Country: None (occurrence: None)
  Receive Date: 20120327
  Receipt Date: 20120320
  Transmission Date: 20120608
  Serious: Yes (Hospitalization)
  Sender: FDA-Public Use
  Company Number: US-GLAXOSMITHKLINE-Z0014453A

PATIENT
  Age: 13 Year
  Sex: Female
  Weight: 51.7 kg

DRUGS (3)
  1. LAMOTRGINE [Suspect]
     Indication: BIPOLAR I DISORDER
     Dosage: 25MG ALTERNATE DAYS
     Route: 048
     Dates: start: 20120111, end: 20120305
  2. ABILIFY [Concomitant]
     Indication: MOOD ALTERED
     Dosage: 10MG PER DAY
     Route: 048
     Dates: start: 20110101
  3. DEPAKOTE [Concomitant]
     Indication: MOOD ALTERED
     Dosage: 1000MG PER DAY
     Route: 048
     Dates: start: 20110101

REACTIONS (1)
  - SUICIDAL IDEATION [None]
